FAERS Safety Report 10066572 (Version 1)
Quarter: 2014Q2

REPORT INFORMATION
  Report Type: Spontaneous
  Country: IT (occurrence: IT)
  Receive Date: 20140408
  Receipt Date: 20140408
  Transmission Date: 20141212
  Serious: Yes (Other)
  Sender: FDA-Public Use
  Company Number: CHNY2014IT000938

PATIENT
  Age: 15 Year
  Sex: Female

DRUGS (2)
  1. TRANSDERM-SCOP [Suspect]
     Indication: MOTION SICKNESS
     Dosage: 2 DF, BID
     Route: 062
  2. LEVOCETIRIZINE [Concomitant]
     Indication: CONJUNCTIVITIS ALLERGIC

REACTIONS (7)
  - Retrograde amnesia [Recovering/Resolving]
  - Hallucination, visual [Recovered/Resolved]
  - Pupillary light reflex tests abnormal [Recovering/Resolving]
  - Insomnia [Recovering/Resolving]
  - Mydriasis [Recovering/Resolving]
  - Confusional state [Recovering/Resolving]
  - Overdose [Unknown]
